FAERS Safety Report 18016344 (Version 1)
Quarter: 2020Q3

REPORT INFORMATION
  Report Type: Spontaneous
  Country: US (occurrence: US)
  Receive Date: 20200713
  Receipt Date: 20200713
  Transmission Date: 20201103
  Serious: No
  Sender: FDA-Public Use
  Company Number: NVSC2020US196183

PATIENT
  Sex: Female

DRUGS (1)
  1. PIQRAY [Suspect]
     Active Substance: ALPELISIB
     Indication: BREAST CANCER
     Dosage: 300 MG/KG, QD
     Route: 048

REACTIONS (3)
  - Fatigue [Recovering/Resolving]
  - Hyperglycaemia [Recovering/Resolving]
  - Stomatitis [Recovering/Resolving]
